FAERS Safety Report 15886197 (Version 1)
Quarter: 2019Q1

REPORT INFORMATION
  Report Type: Spontaneous
  Country: FR (occurrence: FR)
  Receive Date: 20190129
  Receipt Date: 20190129
  Transmission Date: 20190417
  Serious: Yes (Hospitalization)
  Sender: FDA-Public Use
  Company Number: FR-PFIZER INC-2019034947

PATIENT
  Age: 15 Year
  Sex: Male

DRUGS (3)
  1. XANAX [Suspect]
     Active Substance: ALPRAZOLAM
     Dosage: UNK UNK, 2X/WEEK
     Route: 048
     Dates: start: 201802, end: 20181031
  2. CODEINE [Suspect]
     Active Substance: CODEINE
     Dosage: UNK UNK, 2X/WEEK
     Dates: start: 201802, end: 20181031
  3. TRAMADOL MYLAN [Suspect]
     Active Substance: TRAMADOL
     Dosage: UNK,500 MG ON THE EPISODE
     Route: 048
     Dates: start: 201802, end: 20181122

REACTIONS (2)
  - Drug dependence [Not Recovered/Not Resolved]
  - Stupor [Recovered/Resolved]

NARRATIVE: CASE EVENT DATE: 201802
